FAERS Safety Report 12658315 (Version 1)
Quarter: 2016Q3

REPORT INFORMATION
  Report Type: Spontaneous
  Country: US (occurrence: US)
  Receive Date: 20160817
  Receipt Date: 20160817
  Transmission Date: 20161109
  Serious: No
  Sender: FDA-Public Use
  Company Number: US-BEH-2016072174

PATIENT
  Age: 52 Year
  Sex: Male
  Weight: 118.82 kg

DRUGS (9)
  1. HIZENTRA [Suspect]
     Active Substance: HUMAN IMMUNOGLOBULIN G
     Dosage: 12 G, QW
     Route: 058
     Dates: start: 20160128
  2. HIZENTRA [Suspect]
     Active Substance: HUMAN IMMUNOGLOBULIN G
     Dosage: UNK
     Route: 058
  3. TURMERIC                           /01079602/ [Concomitant]
     Active Substance: TURMERIC
  4. GABAPENTIN. [Concomitant]
     Active Substance: GABAPENTIN
  5. VALACYCLOVIR [Concomitant]
     Active Substance: VALACYCLOVIR HYDROCHLORIDE
  6. HIZENTRA [Suspect]
     Active Substance: HUMAN IMMUNOGLOBULIN G
     Indication: IMMUNODEFICIENCY COMMON VARIABLE
     Route: 058
  7. EPIPEN [Concomitant]
     Active Substance: EPINEPHRINE
  8. FISH OIL [Concomitant]
     Active Substance: FISH OIL
  9. VITAMIN B12 AND FOLIC ACID [Concomitant]

REACTIONS (2)
  - Back pain [Unknown]
  - Pruritus [Unknown]
